FAERS Safety Report 24750850 (Version 4)
Quarter: 2025Q1

REPORT INFORMATION
  Report Type: Report from Study
  Country: US (occurrence: US)
  Receive Date: 20241219
  Receipt Date: 20250107
  Transmission Date: 20250409
  Serious: Yes (Hospitalization)
  Sender: ABBVIE
  Company Number: US-ABBVIE-6047382

PATIENT
  Age: 72 Year
  Sex: Male

DRUGS (2)
  1. DUOPA [Suspect]
     Active Substance: CARBIDOPA\LEVODOPA
     Indication: Parkinson^s disease
     Route: 050
     Dates: start: 20200722
  2. DUOPA [Suspect]
     Active Substance: CARBIDOPA\LEVODOPA
     Route: 050
     Dates: start: 20200313

REACTIONS (14)
  - Movement disorder [Recovering/Resolving]
  - Pyrexia [Recovered/Resolved]
  - Hyperpyrexia [Unknown]
  - Endoscopic retrograde cholangiopancreatography [Recovered/Resolved]
  - Pyrexia [Recovered/Resolved]
  - Dyskinesia [Recovering/Resolving]
  - Serotonin syndrome [Not Recovered/Not Resolved]
  - Encephalopathy [Not Recovered/Not Resolved]
  - Liver abscess [Not Recovered/Not Resolved]
  - Respiratory dyskinesia [Not Recovered/Not Resolved]
  - Endotracheal intubation [Not Recovered/Not Resolved]
  - Device issue [Unknown]
  - Hepatic fibrosis [Not Recovered/Not Resolved]
  - Post procedural infection [Recovered/Resolved]

NARRATIVE: CASE EVENT DATE: 20241212
